FAERS Safety Report 6497455-8 (Version None)
Quarter: 2009Q4

REPORT INFORMATION
  Report Type: 
  Country: None (occurrence: None)
  Receive Date: 20091215
  Receipt Date: 20091210
  Transmission Date: 20100525
  Serious: Yes (Life-Threatening, Hospitalization, Other)
  Sender: FDA-Public Use
  Company Number: US-ASTRAZENECA-2009SE31135

PATIENT
  Age: 47 Year
  Sex: Female

DRUGS (5)
  1. BUPIVACAINE [Suspect]
     Route: 053
  2. ENALAPRIL [Concomitant]
  3. METFORMIN HCL [Concomitant]
  4. ATORVASTATIN CALCIUM [Concomitant]
  5. FLUOXETINE [Concomitant]

REACTIONS (2)
  - CARDIO-RESPIRATORY ARREST [None]
  - CONVULSION [None]
